FAERS Safety Report 11319585 (Version 5)
Quarter: 2022Q1

REPORT INFORMATION
  Report Type: Spontaneous
  Country: FR (occurrence: FR)
  Receive Date: 20150729
  Receipt Date: 20220316
  Transmission Date: 20220423
  Serious: Yes (Hospitalization, Other)
  Sender: FDA-Public Use
  Company Number: FR-AUROBINDO-AUR-APL-2015-06428

PATIENT
  Age: 66 Year
  Sex: Male

DRUGS (2)
  1. AMOXICILLIN [Suspect]
     Active Substance: AMOXICILLIN
     Indication: Encephalitis
     Dosage: 18 GRAM, ONCE A DAY, 3 G, 6QD
     Route: 065
  2. METHYLPREDNISOLONE [Suspect]
     Active Substance: METHYLPREDNISOLONE
     Indication: Acute disseminated encephalomyelitis
     Dosage: 1 GRAM, ONCE A DAY
     Route: 065

REACTIONS (9)
  - Crystal nephropathy [Recovered/Resolved]
  - Acute kidney injury [Recovered/Resolved]
  - Haematuria [Recovering/Resolving]
  - Oliguria [Recovered/Resolved]
  - Urine phosphorus decreased [Recovered/Resolved]
  - Hypotension [Recovered/Resolved]
  - Proteinuria [Recovered/Resolved]
  - Blood urea increased [Recovered/Resolved]
  - Overdose [Unknown]
